FAERS Safety Report 6374307-5 (Version None)
Quarter: 2009Q3

REPORT INFORMATION
  Report Type: 
  Country: None (occurrence: None)
  Receive Date: 20090921
  Receipt Date: 20090921
  Transmission Date: 20100115
  Serious: Yes (Other)
  Sender: FDA-Public Use
  Company Number: None

PATIENT
  Age: 59 Year
  Sex: Female
  Weight: 54.4316 kg

DRUGS (4)
  1. ORENCIA [Suspect]
     Dosage: 500MG QMONTH IV
     Route: 042
     Dates: start: 20081001
  2. METHOTREXATE [Suspect]
     Dosage: QWEEK PO (10MG)
     Route: 048
  3. BONIVA [Concomitant]
  4. PREDNISONE [Concomitant]

REACTIONS (1)
  - BREAST CANCER FEMALE [None]
